FAERS Safety Report 5069529-X (Version None)
Quarter: 2006Q3

REPORT INFORMATION
  Report Type: 
  Country: None (occurrence: None)
  Receive Date: 20060803
  Receipt Date: 20060404
  Transmission Date: 20061208
  Serious: Yes (Hospitalization)
  Sender: FDA-Public Use
  Company Number: DE-BAYER-200610475BVD

PATIENT
  Age: 58 Year
  Sex: Male
  Weight: 55 kg

DRUGS (4)
  1. SORAFENIB [Suspect]
     Indication: HEPATIC NEOPLASM MALIGNANT
     Route: 048
     Dates: start: 20051222
  2. BELOC ZOK [Concomitant]
     Route: 065
     Dates: start: 20051101, end: 20051201
  3. BELOC ZOK [Concomitant]
     Route: 065
     Dates: start: 20051206
  4. FINLEPSIN [Concomitant]
     Route: 065
     Dates: start: 19970501

REACTIONS (1)
  - HYPERKERATOSIS [None]
